FAERS Safety Report 7592104-X (Version None)
Quarter: 2011Q3

REPORT INFORMATION
  Report Type: 
  Country: None (occurrence: None)
  Receive Date: 20110705
  Receipt Date: 20110705
  Transmission Date: 20111222
  Serious: Yes (Other)
  Sender: FDA-Public Use
  Company Number: None

PATIENT
  Age: 76 Year
  Sex: Female
  Weight: 65.7716 kg

DRUGS (1)
  1. HUMIRA [Suspect]
     Indication: RHEUMATOID ARTHRITIS
     Dosage: 40MG / 0.8 ML 1XEVERY 2-WEEKS ID
     Route: 023
     Dates: start: 20110201, end: 20110228

REACTIONS (3)
  - DECREASED ACTIVITY [None]
  - ABDOMINAL DISCOMFORT [None]
  - MALAISE [None]
